FAERS Safety Report 15227444 (Version 2)
Quarter: 2018Q4

REPORT INFORMATION
  Report Type: Spontaneous
  Country: ZA (occurrence: ZA)
  Receive Date: 20180801
  Receipt Date: 20180807
  Transmission Date: 20190204
  Serious: Yes (Hospitalization, Other)
  Sender: FDA-Public Use
  Company Number: ZA-PFIZER INC-2018305088

PATIENT
  Age: 78 Year
  Sex: Female

DRUGS (10)
  1. TAREG [Suspect]
     Active Substance: VALSARTAN
     Dosage: 160 MG, UNK
  2. SERC /00034201/ [Suspect]
     Active Substance: THIORIDAZINE
     Dosage: 24 MG, UNK
  3. DIAGLUCIDE [Suspect]
     Active Substance: GLICLAZIDE
     Dosage: 30 MG, UNK
  4. VERAHEXAL [Suspect]
     Active Substance: VERAPAMIL HYDROCHLORIDE
     Dosage: 240 MG, UNK
  5. LYRICA [Suspect]
     Active Substance: PREGABALIN
     Dosage: 25 MG, UNK
  6. BAYER ASPIRIN CARDIO [Suspect]
     Active Substance: ASPIRIN
     Dosage: 100 MG, UNK
  7. CIPLAVASC [Suspect]
     Active Substance: AMLODIPINE BESYLATE
     Dosage: 10 MG, UNK
  8. LIPITOR [Suspect]
     Active Substance: ATORVASTATIN CALCIUM
     Dosage: 10 MG, UNK
  9. ADCO-ZOLPIDEM [Suspect]
     Active Substance: ZOLPIDEM TARTRATE
     Dosage: 10 MG, UNK
  10. GALVUS [Suspect]
     Active Substance: VILDAGLIPTIN
     Dosage: 50 MG, UNK

REACTIONS (2)
  - Ankle fracture [Unknown]
  - Fall [Unknown]
